FAERS Safety Report 6519867-6 (Version None)
Quarter: 2009Q4

REPORT INFORMATION
  Report Type: 
  Country: None (occurrence: None)
  Receive Date: 20091228
  Receipt Date: 20091221
  Transmission Date: 20100525
  Serious: Yes (Hospitalization)
  Sender: FDA-Public Use
  Company Number: US-ELI_LILLY_AND_COMPANY-US200912004902

PATIENT
  Sex: Female
  Weight: 78.4 kg

DRUGS (8)
  1. PEMETREXED [Suspect]
     Indication: NON-SMALL CELL LUNG CANCER
     Dosage: 500 MG/M2, OTHER
     Route: 042
     Dates: start: 20091124
  2. CISPLATIN [Suspect]
     Indication: NON-SMALL CELL LUNG CANCER
     Dosage: 75 MG/M2, OTHER
     Route: 042
     Dates: start: 20091124
  3. FOLIC ACID [Concomitant]
     Dates: start: 20091117
  4. VITAMIN B-12 [Concomitant]
     Dates: start: 20091117
  5. DEXAMETHASONE [Concomitant]
     Indication: PROPHYLAXIS
     Dates: start: 20091123
  6. EMEND [Concomitant]
     Indication: PROPHYLAXIS
     Dates: start: 20091123
  7. AMBIEN CR [Concomitant]
     Indication: INSOMNIA
     Dates: start: 20091117
  8. ONDANSETRON [Concomitant]
     Indication: PROPHYLAXIS
     Dates: start: 20091124

REACTIONS (1)
  - ARTERIAL THROMBOSIS [None]
